FAERS Safety Report 4803874-5 (Version None)
Quarter: 2005Q4

REPORT INFORMATION
  Report Type: 
  Country: None (occurrence: None)
  Receive Date: 20051013
  Receipt Date: 20050929
  Transmission Date: 20060501
  Serious: Yes (Other)
  Sender: FDA-Public Use
  Company Number: 25550

PATIENT
  Age: 52 Year
  Sex: Male

DRUGS (3)
  1. ALDARA [Suspect]
     Indication: BOWEN'S DISEASE
     Dosage: 1 SACHET, 3 IN 1 WEEK (S) ), TOPICAL
     Route: 061
     Dates: start: 20040818, end: 20040903
  2. PLAQUENIL [Suspect]
     Indication: RHEUMATOID ARTHRITIS
     Dosage: ORAL
     Route: 048
     Dates: start: 20041101
  3. NAPROSYN [Suspect]
     Indication: RHEUMATOID ARTHRITIS
     Dosage: ORAL
     Route: 048
     Dates: end: 20041101

REACTIONS (18)
  - APPLICATION SITE DERMATITIS [None]
  - BACK PAIN [None]
  - DERMATITIS [None]
  - DRUG ERUPTION [None]
  - DRUG INEFFECTIVE [None]
  - FURUNCLE [None]
  - GRANULOMA [None]
  - HERPES SIMPLEX [None]
  - LARYNGEAL OEDEMA [None]
  - LARYNGITIS [None]
  - LOCALISED INFECTION [None]
  - NAIL DISCOLOURATION [None]
  - PORPHYRIA [None]
  - PYREXIA [None]
  - RHEUMATOID ARTHRITIS [None]
  - STAPHYLOCOCCAL INFECTION [None]
  - SYSTEMIC LUPUS ERYTHEMATOSUS [None]
  - THERAPEUTIC RESPONSE UNEXPECTED [None]
